FAERS Safety Report 7867678-1 (Version None)
Quarter: 2011Q4

REPORT INFORMATION
  Report Type: 
  Country: None (occurrence: None)
  Receive Date: 20111026
  Receipt Date: 20111012
  Transmission Date: 20120403
  Serious: Yes (Hospitalization)
  Sender: FDA-Public Use
  Company Number: 2011P1009487

PATIENT
  Age: 81 Year
  Sex: Male

DRUGS (11)
  1. CITALOPRAM HYDROBROMIDE [Concomitant]
  2. LISINOPRIL [Concomitant]
  3. TIOTROPIUM [Concomitant]
  4. AMITRIPTYLINE HCL [Concomitant]
  5. ALENDRONIC ACID [Concomitant]
  6. BROMIDE [Concomitant]
  7. FENTANYL [Suspect]
     Indication: PAIN
     Dosage: 12 MCG; TDER
     Route: 062
     Dates: start: 20110710, end: 20110909
  8. OMEPRAZOLE [Concomitant]
  9. BETAHISTINE [Concomitant]
  10. CALCIUM CARBONATE [Concomitant]
  11. FINASTERIDE [Concomitant]

REACTIONS (2)
  - SEDATION [None]
  - CONFUSIONAL STATE [None]
